FAERS Safety Report 7402274-1 (Version None)
Quarter: 2011Q2

REPORT INFORMATION
  Report Type: 
  Country: None (occurrence: None)
  Receive Date: 20110408
  Receipt Date: 20110314
  Transmission Date: 20111010
  Serious: No
  Sender: FDA-Public Use
  Company Number: US-B.I. PHARMACEUTICALS,INC./RIDGEFIELD-2011-BP-08238BP

PATIENT
  Sex: Male

DRUGS (7)
  1. DIGOXIN [Concomitant]
     Indication: ATRIAL FIBRILLATION
  2. TRILIPIX [Concomitant]
     Dosage: 135 MG
  3. PRADAXA [Suspect]
     Indication: ATRIAL FIBRILLATION
     Dosage: 300 MG
     Route: 048
     Dates: start: 20110311
  4. FISH OIL [Concomitant]
     Indication: SUPPLEMENTATION THERAPY
  5. ZETIA [Concomitant]
     Indication: BLOOD CHOLESTEROL INCREASED
     Dosage: 10 MG
  6. METOPROLOL [Concomitant]
     Indication: ATRIAL FIBRILLATION
     Dosage: 50 MG
  7. COENZYME Q10 [Concomitant]
     Indication: SUPPLEMENTATION THERAPY

REACTIONS (3)
  - NAUSEA [None]
  - DECREASED APPETITE [None]
  - DIARRHOEA [None]
